FAERS Safety Report 15302450 (Version 3)
Quarter: 2018Q4

REPORT INFORMATION
  Report Type: Report from Study
  Country: NL (occurrence: NL)
  Receive Date: 20180821
  Receipt Date: 20181009
  Transmission Date: 20190204
  Serious: Yes (Hospitalization)
  Sender: FDA-Public Use
  Company Number: NL-CELGENEUS-NLD-20180804691

PATIENT
  Age: 62 Year
  Sex: Male
  Weight: 79 kg

DRUGS (3)
  1. LDE225 [Suspect]
     Active Substance: ERISMODEGIB
     Indication: PANCREATIC CARCINOMA
     Dosage: 200 MILLIGRAM
     Route: 048
     Dates: start: 20180515, end: 20180814
  2. ABRAXANE [Suspect]
     Active Substance: PACLITAXEL
     Indication: PANCREATIC CARCINOMA
     Dosage: 125 MILLIGRAM/SQ. METER
     Route: 041
     Dates: start: 20180515, end: 20180813
  3. GEMCITABINE [Suspect]
     Active Substance: GEMCITABINE\GEMCITABINE HYDROCHLORIDE
     Indication: PANCREATIC CARCINOMA
     Dosage: 1000 MILLIGRAM/SQ. METER
     Route: 041
     Dates: start: 20180515, end: 20180813

REACTIONS (2)
  - Gastric haemorrhage [Recovered/Resolved]
  - Cholecystitis [Recovered/Resolved]

NARRATIVE: CASE EVENT DATE: 20180814
